FAERS Safety Report 25425243 (Version 1)
Quarter: 2025Q2

REPORT INFORMATION
  Report Type: Report from Study
  Country: US (occurrence: US)
  Receive Date: 20250611
  Receipt Date: 20250611
  Transmission Date: 20250716
  Serious: Yes (Hospitalization)
  Sender: EISAI
  Company Number: US-Eisai-EC-2025-190594

PATIENT
  Age: 73 Year
  Sex: Male

DRUGS (4)
  1. LENVIMA [Suspect]
     Active Substance: LENVATINIB
     Indication: Thyroid cancer
     Dates: start: 20240724, end: 20240814
  2. LENVIMA [Suspect]
     Active Substance: LENVATINIB
     Dates: start: 20240815, end: 20241021
  3. LENVIMA [Suspect]
     Active Substance: LENVATINIB
     Dates: start: 20241025, end: 20250317
  4. LENVIMA [Suspect]
     Active Substance: LENVATINIB
     Dates: start: 20250318

REACTIONS (1)
  - Dehydration [Recovered/Resolved]

NARRATIVE: CASE EVENT DATE: 20250428
